FAERS Safety Report 9617620 (Version 1)
Quarter: 2013Q4

REPORT INFORMATION
  Report Type: Spontaneous
  Country: US (occurrence: None)
  Receive Date: 20131009
  Receipt Date: 20131009
  Transmission Date: 20140711
  Serious: No
  Sender: FDA-Public Use
  Company Number: 2013AP008664

PATIENT
  Age: 60 Year
  Sex: Female

DRUGS (13)
  1. AMLODIPINE BESYLATE TABLETS [Suspect]
     Route: 048
  2. TIZANIDINE HYDROCHLORIDE TABLETS [Suspect]
     Route: 048
  3. ZOLPIDEM TARTRATE TABLETS [Suspect]
     Route: 048
  4. ARIPIPRAZOLE [Suspect]
     Route: 048
  5. HYDROCODONE [Suspect]
     Route: 048
  6. OXYCODONE [Suspect]
     Route: 048
  7. FLUOXETINE HYDROCHLORIDE ORAL SOLUTION [Suspect]
     Route: 048
  8. AMITRIPTYLINE [Suspect]
     Route: 048
  9. HYOSCYAMINE [Suspect]
     Route: 048
  10. HYDROCHLORTHIAZIDE [Suspect]
     Route: 048
  11. SIMVASTATIN [Suspect]
  12. SUMATRIPTAN [Suspect]
     Route: 048
  13. ACETAMINOPHEN [Suspect]
     Route: 048

REACTIONS (2)
  - Completed suicide [None]
  - Cardio-respiratory arrest [None]
